FAERS Safety Report 20851966 (Version 1)
Quarter: 2022Q2

REPORT INFORMATION
  Report Type: Spontaneous
  Country: JP (occurrence: JP)
  Receive Date: 20220520
  Receipt Date: 20220520
  Transmission Date: 20220721
  Serious: Yes (Other)
  Sender: FDA-Public Use
  Company Number: JP-AMGEN-JPNSP2022085014

PATIENT
  Sex: Female

DRUGS (3)
  1. EVENITY [Suspect]
     Active Substance: ROMOSOZUMAB-AQQG
     Indication: Product used for unknown indication
     Dosage: 140 MILLIGRAM, QMO
     Route: 058
  2. CARVEDILOL [Concomitant]
     Active Substance: CARVEDILOL
     Dosage: 10 MILLIGRAM
  3. CARVEDILOL [Concomitant]
     Active Substance: CARVEDILOL
     Dosage: 05 MILLIGRAM

REACTIONS (2)
  - Bradycardia [Unknown]
  - Off label use [Unknown]

NARRATIVE: CASE EVENT DATE: 20220415
